FAERS Safety Report 21925117 (Version 1)
Quarter: 2023Q1

REPORT INFORMATION
  Report Type: Spontaneous
  Country: CN (occurrence: CN)
  Receive Date: 20230130
  Receipt Date: 20230130
  Transmission Date: 20230417
  Serious: Yes (Other)
  Sender: FDA-Public Use
  Company Number: CN-BRISTOL-MYERS SQUIBB COMPANY-2023-011954

PATIENT
  Age: 38 Year
  Sex: Female
  Weight: 40.3 kg

DRUGS (4)
  1. ABRAXANE [Suspect]
     Active Substance: PACLITAXEL
     Indication: Breast neoplasm
     Dosage: 260 MG/M2 4X Q21 DAYS
     Route: 041
     Dates: start: 20230105, end: 20230105
  2. DOXORUBICIN HYDROCHLORIDE [Suspect]
     Active Substance: DOXORUBICIN HYDROCHLORIDE
     Indication: Breast neoplasm
     Dosage: SIXTH CYCLE?X4 Q21 DAYS SEQUENTIAL
     Dates: start: 20230105
  3. CYCLOPHOSPHAMIDE [Suspect]
     Active Substance: CYCLOPHOSPHAMIDE
     Indication: Breast neoplasm
     Dosage: SIXTH CYCLE?X4 Q21 DAYS SEQUENTIAL
     Dates: start: 20230105
  4. SODIUM CHLORIDE [Concomitant]
     Active Substance: SODIUM CHLORIDE
     Indication: Product used for unknown indication
     Dosage: LIQUID FOR INJECTION
     Route: 041
     Dates: start: 20230105, end: 20230105

REACTIONS (2)
  - Drug-induced liver injury [Recovering/Resolving]
  - Off label use [Unknown]

NARRATIVE: CASE EVENT DATE: 20230110
